FAERS Safety Report 14325283 (Version 2)
Quarter: 2017Q4

REPORT INFORMATION
  Report Type: Spontaneous
  Country: US (occurrence: US)
  Receive Date: 20171226
  Receipt Date: 20171226
  Transmission Date: 20180321
  Serious: Yes (Other)
  Sender: FDA-Public Use
  Company Number: PHHY2017US083029

PATIENT
  Age: 41 Year
  Sex: Female

DRUGS (6)
  1. OXCARBAZEPINE. [Suspect]
     Active Substance: OXCARBAZEPINE
     Indication: ERYTHROMELALGIA
     Route: 065
  2. TOPIRAMATE. [Suspect]
     Active Substance: TOPIRAMATE
     Indication: ERYTHROMELALGIA
     Route: 065
  3. LAMOTRIGINE. [Suspect]
     Active Substance: LAMOTRIGINE
     Indication: ERYTHROMELALGIA
     Route: 065
  4. CAPSAICIN. [Suspect]
     Active Substance: CAPSAICIN
     Indication: ERYTHROMELALGIA
     Dosage: HIGH-DOSE
     Route: 065
  5. GLYCERYL TRINITRATE [Suspect]
     Active Substance: NITROGLYCERIN
     Indication: ERYTHROMELALGIA
     Route: 042
  6. CARBAMAZEPINE. [Suspect]
     Active Substance: CARBAMAZEPINE
     Indication: ERYTHROMELALGIA
     Route: 065

REACTIONS (3)
  - Drug ineffective [Unknown]
  - Product use in unapproved indication [Unknown]
  - Skin exfoliation [Unknown]
